FAERS Safety Report 7834550-2 (Version None)
Quarter: 2011Q4

REPORT INFORMATION
  Report Type: 
  Country: None (occurrence: None)
  Receive Date: 20111024
  Receipt Date: 20111018
  Transmission Date: 20120403
  Serious: Yes (Other)
  Sender: FDA-Public Use
  Company Number: CA-MERCK-1010USA00610

PATIENT
  Age: 56 Year
  Sex: Male

DRUGS (2)
  1. ISENTRESS [Suspect]
     Route: 048
  2. FUZEON [Suspect]
     Route: 065

REACTIONS (5)
  - DIARRHOEA [None]
  - INJECTION SITE REACTION [None]
  - PROSTATE CANCER [None]
  - DEPRESSION [None]
  - NEUROPATHY PERIPHERAL [None]
